FAERS Safety Report 6999947-1 (Version None)
Quarter: 2010Q3

REPORT INFORMATION
  Report Type: 
  Country: None (occurrence: None)
  Receive Date: 20100920
  Receipt Date: 20100908
  Transmission Date: 20110219
  Serious: Yes (Life-Threatening, Hospitalization)
  Sender: FDA-Public Use
  Company Number: US-BAYER-201028140NA

PATIENT
  Age: 39 Year
  Sex: Male
  Weight: 125 kg

DRUGS (13)
  1. ULTRAVIST 370 [Suspect]
     Indication: PULMONARY EMBOLISM
     Dosage: AS USED: 100 ML  UNIT DOSE: 100 ML
     Route: 042
     Dates: start: 20100713, end: 20100713
  2. LISINOPRIL [Concomitant]
  3. ASPIRIN [Concomitant]
  4. LIPITOR [Concomitant]
  5. INSULIN PUMP [Concomitant]
  6. PREDNISONE [Concomitant]
     Indication: PREMEDICATION
     Dosage: 5:30 - 6:00 THE DAY BEFORE THE EXAM
     Dates: start: 20100712, end: 20100712
  7. PREDNISONE [Concomitant]
     Dosage: 5:30 - 6:00 THE DAY OF THE EXAM
     Dates: start: 20100713, end: 20100713
  8. BENADRYL [Concomitant]
     Indication: PREMEDICATION
     Dosage: AS USED: 50  MG
     Dates: start: 20100712, end: 20100712
  9. BENADRYL [Concomitant]
     Dosage: AS USED: 50 MG
     Dates: start: 20100713, end: 20100713
  10. REGULAR INSULIN [Concomitant]
     Dosage: TOTAL DAILY DOSE: 10 U
     Dates: start: 20100713, end: 20100713
  11. REGULAR INSULIN [Concomitant]
     Dosage: TOTAL DAILY DOSE: 10 U
     Dates: start: 20100714, end: 20100714
  12. REGULAR INSULIN [Concomitant]
     Dosage: TOTAL DAILY DOSE: 6 U
     Dates: start: 20100714, end: 20100714
  13. REGULAR INSULIN [Concomitant]
     Dosage: TOTAL DAILY DOSE: 10 U
     Dates: start: 20100715, end: 20100715

REACTIONS (8)
  - ANAPHYLACTIC REACTION [None]
  - DYSPNOEA [None]
  - PRURITUS [None]
  - RESPIRATORY DISTRESS [None]
  - RESPIRATORY FAILURE [None]
  - STRIDOR [None]
  - URTICARIA [None]
  - WHEEZING [None]
